FAERS Safety Report 23712659 (Version 3)
Quarter: 2024Q2

REPORT INFORMATION
  Report Type: Report from Study
  Country: CA (occurrence: CA)
  Receive Date: 20240405
  Receipt Date: 20240419
  Transmission Date: 20240715
  Serious: Yes (Other)
  Sender: FDA-Public Use
  Company Number: CA-UCBSA-2024010784

PATIENT
  Age: 43 Year
  Sex: Female

DRUGS (2)
  1. BIMEKIZUMAB [Suspect]
     Active Substance: BIMEKIZUMAB
     Indication: Psoriasis
     Dosage: 320 MILLIGRAM, EV 4 WEEKS X 4
     Route: 058
     Dates: start: 20231220
  2. BIMEKIZUMAB [Suspect]
     Active Substance: BIMEKIZUMAB
     Dosage: 320 MILLIGRAM, EV 8 WEEKS
     Route: 058

REACTIONS (6)
  - Cellulitis [Unknown]
  - Alopecia [Unknown]
  - Device malfunction [Unknown]
  - Incorrect dose administered [Unknown]
  - Accidental exposure to product [Unknown]
  - Treatment noncompliance [Unknown]

NARRATIVE: CASE EVENT DATE: 20240329
